FAERS Safety Report 6245627-X (Version None)
Quarter: 2009Q2

REPORT INFORMATION
  Report Type: 
  Country: None (occurrence: None)
  Receive Date: 20090625
  Receipt Date: 20080722
  Transmission Date: 20091009
  Serious: No
  Sender: FDA-Public Use
  Company Number: BR-ASTRAZENECA-2008UW14489

PATIENT
  Age: 31 Year
  Sex: Female
  Weight: 55 kg

DRUGS (1)
  1. ZOLADEX [Suspect]
     Dosage: 10.8 MG EVERY FOUR WEEKS
     Route: 058
     Dates: start: 20070901

REACTIONS (2)
  - AMENORRHOEA [None]
  - RHABDOMYOMA [None]
